FAERS Safety Report 24244830 (Version 1)
Quarter: 2024Q3

REPORT INFORMATION
  Report Type: Report from Study
  Country: FR (occurrence: FR)
  Receive Date: 20240823
  Receipt Date: 20240823
  Transmission Date: 20241017
  Serious: Yes (Death)
  Sender: PFIZER
  Company Number: FR-GRUNENTHAL-2023-100195

PATIENT
  Age: 45 Year
  Sex: Male

DRUGS (2)
  1. ATRACURIUM BESYLATE [Suspect]
     Active Substance: ATRACURIUM BESYLATE
     Indication: Suicide attempt
     Dosage: UNK
  2. FENTANYL [Concomitant]
     Active Substance: FENTANYL\FENTANYL CITRATE
     Dosage: UNK

REACTIONS (2)
  - Intentional product misuse [Fatal]
  - Completed suicide [Fatal]

NARRATIVE: CASE EVENT DATE: 20170101
